FAERS Safety Report 5489035-8 (Version None)
Quarter: 2007Q4

REPORT INFORMATION
  Report Type: 
  Country: None (occurrence: None)
  Receive Date: 20071018
  Receipt Date: 20071016
  Transmission Date: 20080405
  Serious: Yes (Death, Hospitalization)
  Sender: FDA-Public Use
  Company Number: PHNU2006DE00662

PATIENT
  Age: 25 Year
  Sex: Male
  Weight: 102 kg

DRUGS (3)
  1. ZANTAC [Concomitant]
     Indication: ABDOMINAL PAIN UPPER
     Dosage: 300 MG, QD
     Route: 048
     Dates: start: 20031201, end: 20050301
  2. SOLIAN [Concomitant]
     Indication: SCHIZOPHRENIA
     Dosage: 200 - 200 - 100MG/DAY
     Route: 048
     Dates: start: 20030901, end: 20050301
  3. LEPONEX [Suspect]
     Indication: SCHIZOPHRENIA
     Dosage: UP TO 100 - 150 - 200 MG/DAY
     Route: 048
     Dates: start: 20010101, end: 20050301

REACTIONS (5)
  - CARDIAC ARREST [None]
  - DIABETIC HYPERGLYCAEMIC COMA [None]
  - KETOACIDOSIS [None]
  - SALIVARY HYPERSECRETION [None]
  - WEIGHT INCREASED [None]
